FAERS Safety Report 11533977 (Version 1)
Quarter: 2015Q3

REPORT INFORMATION
  Report Type: Spontaneous
  Country: FR (occurrence: FR)
  Receive Date: 20150922
  Receipt Date: 20150922
  Transmission Date: 20151125
  Serious: Yes (Other)
  Sender: FDA-Public Use
  Company Number: FR-PFIZER INC-2015307926

PATIENT
  Age: 52 Year
  Sex: Male

DRUGS (5)
  1. BISOPROLOL [Concomitant]
     Active Substance: BISOPROLOL
     Dosage: UNK
     Dates: start: 201502
  2. DOCETAXEL HOSPIRA [Suspect]
     Active Substance: DOCETAXEL
     Indication: SQUAMOUS CELL CARCINOMA
     Dosage: UNK
     Route: 042
     Dates: start: 20150326, end: 20150528
  3. LOVENOX [Concomitant]
     Active Substance: ENOXAPARIN SODIUM
     Dosage: UNK
     Dates: start: 201502
  4. CISPLATINE ACCORD [Suspect]
     Active Substance: CISPLATIN
     Indication: SQUAMOUS CELL CARCINOMA
     Dosage: UNK
     Route: 042
     Dates: start: 20150326, end: 20150528
  5. CORDARONE [Suspect]
     Active Substance: AMIODARONE HYDROCHLORIDE
     Indication: ATRIAL FIBRILLATION
     Dosage: UNK
     Route: 048
     Dates: start: 201502

REACTIONS (1)
  - Lung disorder [Not Recovered/Not Resolved]

NARRATIVE: CASE EVENT DATE: 201507
